FAERS Safety Report 9643602 (Version 2)
Quarter: 2014Q2

REPORT INFORMATION
  Report Type: Spontaneous
  Country: GB (occurrence: None)
  Receive Date: 20131022
  Receipt Date: 20140521
  Transmission Date: 20141212
  Serious: Yes (Other)
  Sender: FDA-Public Use
  Company Number: 1955998

PATIENT
  Age: 12 Year
  Sex: Female

DRUGS (2)
  1. (METHOTREXATE) [Suspect]
     Indication: JUVENILE IDIOPATHIC ARTHRITIS
     Dosage: UNKNOWN, 1 WEEK, UNKNOWN
  2. (FOLIC ACID) [Concomitant]

REACTIONS (5)
  - Drug effect decreased [None]
  - Fatigue [None]
  - Malaise [None]
  - Uveitis [None]
  - Vision blurred [None]
